FAERS Safety Report 5463039-3 (Version None)
Quarter: 2007Q3

REPORT INFORMATION
  Report Type: 
  Country: None (occurrence: None)
  Receive Date: 20070918
  Receipt Date: 20070918
  Transmission Date: 20080115
  Serious: Yes (Hospitalization)
  Sender: FDA-Public Use
  Company Number: None

PATIENT
  Age: 71 Year
  Sex: Male

DRUGS (1)
  1. LISINOPRIL [Suspect]
     Indication: HYPERTENSION
     Dosage: 20MG EVERY DAY PO
     Route: 048
     Dates: start: 20070122, end: 20070618

REACTIONS (4)
  - ANGIOEDEMA [None]
  - DYSPHAGIA [None]
  - EPIGLOTTIC OEDEMA [None]
  - SPEECH DISORDER [None]
